FAERS Safety Report 8448530-X (Version None)
Quarter: 2012Q2

REPORT INFORMATION
  Report Type: 
  Country: None (occurrence: None)
  Receive Date: 20120619
  Receipt Date: 20120608
  Transmission Date: 20120825
  Serious: Yes (Other)
  Sender: FDA-Public Use
  Company Number: US-ROCHE-1076630

PATIENT
  Sex: Female

DRUGS (6)
  1. ADVAIR DISKUS 100/50 [Concomitant]
     Indication: ASTHMA
  2. BONIVA [Suspect]
     Indication: OSTEOPOROSIS
  3. FOSAMAX [Suspect]
     Indication: OSTEOPOROSIS
  4. PREDNISONE [Concomitant]
     Indication: ASTHMA
  5. FLONASE [Concomitant]
     Indication: ASTHMA
  6. PROVENTIL [Concomitant]
     Indication: ASTHMA

REACTIONS (2)
  - FEMUR FRACTURE [None]
  - STRESS FRACTURE [None]
